FAERS Safety Report 9576791 (Version 1)
Quarter: 2013Q4

REPORT INFORMATION
  Report Type: Spontaneous
  Country: US (occurrence: US)
  Receive Date: 20131001
  Receipt Date: 20131001
  Transmission Date: 20140711
  Serious: No
  Sender: FDA-Public Use
  Company Number: US-AMGEN-USASP2013004689

PATIENT
  Sex: Female
  Weight: 77.1 kg

DRUGS (4)
  1. ENBREL [Suspect]
     Indication: PRODUCT USED FOR UNKNOWN INDICATION
     Dosage: 50 MG/ML, QWK
     Route: 058
  2. ZYRTEC ALLERGY [Concomitant]
     Dosage: 10 MG, UNK
  3. VITAMIN D                          /00107901/ [Concomitant]
     Dosage: 50000 UNIT, UNK
  4. METHOTREXATE [Concomitant]
     Dosage: 1 G, UNK

REACTIONS (1)
  - Injection site erythema [Unknown]
